FAERS Safety Report 14939975 (Version 1)
Quarter: 2018Q2

REPORT INFORMATION
  Report Type: Spontaneous
  Country: US (occurrence: US)
  Receive Date: 20180507
  Receipt Date: 20180507
  Transmission Date: 20180711
  Serious: Yes (Other)
  Sender: FDA-Public Use
  Company Number: None

PATIENT
  Age: 70 Year
  Sex: Female

DRUGS (2)
  1. IBRANCE [Suspect]
     Active Substance: PALBOCICLIB
     Indication: BREAST CANCER
     Route: 048
     Dates: start: 20161026
  2. RESTASIS [Concomitant]
     Active Substance: CYCLOSPORINE

REACTIONS (2)
  - Eye disorder [None]
  - Dry eye [None]

NARRATIVE: CASE EVENT DATE: 20180507
